FAERS Safety Report 8433176-X (Version None)
Quarter: 2012Q2

REPORT INFORMATION
  Report Type: 
  Country: None (occurrence: None)
  Receive Date: 20120613
  Receipt Date: 20120608
  Transmission Date: 20120825
  Serious: Yes (Death)
  Sender: FDA-Public Use
  Company Number: US-GLAXOSMITHKLINE-A0980872A

PATIENT
  Age: 77 Year
  Sex: Female

DRUGS (3)
  1. PREDNISONE TAB [Concomitant]
  2. OXYCONTIN [Concomitant]
  3. VOTRIENT [Suspect]
     Indication: MALIGNANT SOFT TISSUE NEOPLASM
     Dosage: 200MG PER DAY
     Route: 048
     Dates: start: 20120514

REACTIONS (1)
  - DEATH [None]
